FAERS Safety Report 4310904-6 (Version None)
Quarter: 2004Q1

REPORT INFORMATION
  Report Type: 
  Country: None (occurrence: None)
  Receive Date: 20040302
  Receipt Date: 20040223
  Transmission Date: 20041129
  Serious: Yes (Hospitalization)
  Sender: FDA-Public Use
  Company Number: TAP2003Q02594

PATIENT
  Age: 29 Year
  Sex: Female
  Weight: 63.5036 kg

DRUGS (1)
  1. PREVACID [Suspect]
     Indication: GASTROOESOPHAGEAL REFLUX DISEASE
     Dosage: 15 MG, 1 IN 1 D, PER ORAL
     Route: 048
     Dates: start: 20030822, end: 20031003

REACTIONS (12)
  - ANXIETY [None]
  - APTYALISM [None]
  - COMPLICATIONS OF MATERNAL EXPOSURE TO THERAPEUTIC DRUGS [None]
  - DEPRESSION [None]
  - DRY MOUTH [None]
  - FUNGAL INFECTION [None]
  - GLOSSODYNIA [None]
  - ORAL CANDIDIASIS [None]
  - PREMATURE BABY [None]
  - PREMATURE LABOUR [None]
  - STRESS SYMPTOMS [None]
  - URINARY TRACT INFECTION [None]
